FAERS Safety Report 19208503 (Version 4)
Quarter: 2021Q2

REPORT INFORMATION
  Report Type: Spontaneous
  Country: US (occurrence: US)
  Receive Date: 20210503
  Receipt Date: 20210622
  Transmission Date: 20210717
  Serious: Yes (Other)
  Sender: FDA-Public Use
  Company Number: US-SA-2021SA131646

PATIENT
  Age: 21 Year
  Sex: Male

DRUGS (1)
  1. CAPRELSA [Suspect]
     Active Substance: VANDETANIB
     Indication: THYROID CANCER
     Dosage: 100MG ALTERNATING WITH 200MG
     Route: 048
     Dates: start: 20181209

REACTIONS (2)
  - Product dose omission issue [Unknown]
  - Jaw operation [Unknown]
